FAERS Safety Report 13564937 (Version 1)
Quarter: 2017Q2

REPORT INFORMATION
  Report Type: Spontaneous
  Country: US (occurrence: US)
  Receive Date: 20170519
  Receipt Date: 20170519
  Transmission Date: 20170830
  Serious: Yes (Other)
  Sender: FDA-Public Use
  Company Number: US-GLAXOSMITHKLINE-US2017070753

PATIENT
  Age: 70 Year
  Sex: Female

DRUGS (2)
  1. IBUPROFEN. [Suspect]
     Active Substance: IBUPROFEN
     Indication: PRODUCT USED FOR UNKNOWN INDICATION
     Dosage: UNK
  2. VOLTAREN [Suspect]
     Active Substance: DICLOFENAC SODIUM
     Indication: BACK PAIN
     Dosage: UNK
     Dates: start: 2010

REACTIONS (3)
  - Drug administered at inappropriate site [Unknown]
  - Renal impairment [Unknown]
  - Off label use [Unknown]
